FAERS Safety Report 8919483 (Version 1)
Quarter: 2012Q4

REPORT INFORMATION
  Report Type: 
  Country: DE (occurrence: DE)
  Receive Date: 20121121
  Receipt Date: 20121121
  Transmission Date: 20130627
  Serious: Yes (Other)
  Sender: FDA-Public Use
  Company Number: DE-BAYER-2012-119620

PATIENT
  Sex: Female

DRUGS (1)
  1. BETAFERON [Suspect]
     Route: 058

REACTIONS (2)
  - Amnesia [Unknown]
  - Confusional state [Unknown]
